FAERS Safety Report 6896458-9 (Version None)
Quarter: 2010Q3

REPORT INFORMATION
  Report Type: 
  Country: None (occurrence: None)
  Receive Date: 20100802
  Receipt Date: 20090227
  Transmission Date: 20110219
  Serious: No
  Sender: FDA-Public Use
  Company Number: US-PFIZER INC-2009176950

PATIENT
  Sex: Female

DRUGS (5)
  1. GABAPENTIN [Suspect]
     Indication: NEURALGIA
     Dosage: UNK
     Dates: start: 20090202
  2. DYAZIDE [Concomitant]
     Dosage: UNK
  3. CYMBALTA [Concomitant]
  4. ESTRADIOL CIPIONATE [Concomitant]
  5. NEXIUM [Concomitant]

REACTIONS (1)
  - PRURITUS GENERALISED [None]
